FAERS Safety Report 23881947 (Version 1)
Quarter: 2024Q2

REPORT INFORMATION
  Report Type: Other
  Country: US (occurrence: US)
  Receive Date: 20240521
  Receipt Date: 20240521
  Transmission Date: 20240716
  Serious: No
  Sender: FDA-Public Use
  Company Number: US-SIGA Technologies, Inc.-2157275

PATIENT

DRUGS (1)
  1. TPOXX [Suspect]
     Active Substance: TECOVIRIMAT
     Indication: Monkeypox

REACTIONS (6)
  - Headache [Unknown]
  - Diarrhoea [Unknown]
  - Dizziness [Unknown]
  - Brain fog [Unknown]
  - Abdominal pain [Unknown]
  - Nausea [Unknown]
